FAERS Safety Report 21740734 (Version 2)
Quarter: 2025Q4

REPORT INFORMATION
  Report Type: Spontaneous
  Country: US (occurrence: US)
  Receive Date: 20221216
  Receipt Date: 20251205
  Transmission Date: 20260117
  Serious: Yes (Other)
  Sender: REGENERON
  Company Number: US-REGENERON PHARMACEUTICALS, INC.-2022-123882

PATIENT
  Sex: Female

DRUGS (2)
  1. EYLEA [Suspect]
     Active Substance: AFLIBERCEPT
     Indication: Age-related macular degeneration
     Dosage: RIGHT EYE (FORMULATION: UNKNOWN)
     Dates: start: 2016
  2. EYLEA [Suspect]
     Active Substance: AFLIBERCEPT
     Dosage: UNK, FORMULATION: UNKNOWN
     Dates: end: 20230707

REACTIONS (7)
  - Corneal opacity [Recovered/Resolved]
  - Cataract [Unknown]
  - Visual impairment [Unknown]
  - Metamorphopsia [Unknown]
  - Vision blurred [Unknown]
  - Treatment noncompliance [Unknown]
  - Product dose omission issue [Unknown]
